FAERS Safety Report 6425910-5 (Version None)
Quarter: 2009Q4

REPORT INFORMATION
  Report Type: 
  Country: None (occurrence: None)
  Receive Date: 20091030
  Receipt Date: 20091019
  Transmission Date: 20100525
  Serious: Yes (Hospitalization)
  Sender: FDA-Public Use
  Company Number: RENA-1000574

PATIENT
  Age: 63 Year
  Sex: Female

DRUGS (1)
  1. RENAGEL [Suspect]
     Indication: HYPERPHOSPHATAEMIA
     Dosage: 1.6 G, TID, ORAL
     Route: 048
     Dates: start: 20090101

REACTIONS (2)
  - COMPUTERISED TOMOGRAM ABNORMAL [None]
  - SMALL INTESTINAL OBSTRUCTION [None]
